FAERS Safety Report 25945376 (Version 1)
Quarter: 2025Q4

REPORT INFORMATION
  Report Type: Spontaneous
  Country: US (occurrence: None)
  Receive Date: 20251021
  Receipt Date: 20251021
  Transmission Date: 20260117
  Serious: Yes (Hospitalization)
  Sender: FDA-CTU
  Company Number: None

PATIENT
  Age: 26 Year
  Sex: Female
  Weight: 113.2 kg

DRUGS (1)
  1. BRIUMVI [Suspect]
     Active Substance: UBLITUXIMAB-XIIY
     Indication: Myasthenia gravis
     Dosage: OTHER FREQUENCY : EVERY 24 WEEKS;?
     Route: 041
     Dates: start: 20241105

REACTIONS (6)
  - Throat tightness [None]
  - Dysphagia [None]
  - Abdominal pain [None]
  - Chest pain [None]
  - Nausea [None]
  - Infusion related reaction [None]

NARRATIVE: CASE EVENT DATE: 20251017
